FAERS Safety Report 15889635 (Version 4)
Quarter: 2019Q3

REPORT INFORMATION
  Report Type: Spontaneous
  Country: US (occurrence: US)
  Receive Date: 20190130
  Receipt Date: 20190926
  Transmission Date: 20191004
  Serious: Yes (Disabling, Other)
  Sender: FDA-Public Use
  Company Number: US-ASTRAZENECA-2018SF15063

PATIENT
  Age: 20313 Day
  Sex: Male
  Weight: 92.5 kg

DRUGS (31)
  1. NEXIUM [Suspect]
     Active Substance: ESOMEPRAZOLE MAGNESIUM
     Indication: GASTROOESOPHAGEAL REFLUX DISEASE
     Route: 048
     Dates: start: 200404, end: 201412
  2. ETHEZYME [Concomitant]
     Dates: start: 20050914
  3. NEXIUM [Suspect]
     Active Substance: ESOMEPRAZOLE MAGNESIUM
     Indication: GASTROOESOPHAGEAL REFLUX DISEASE
     Dosage: 40 MG
     Route: 048
     Dates: start: 20040419
  4. NORVASC [Concomitant]
     Active Substance: AMLODIPINE BESYLATE
     Dates: start: 20090423
  5. AMITIZA [Concomitant]
     Active Substance: LUBIPROSTONE
  6. LEVEMIR [Concomitant]
     Active Substance: INSULIN DETEMIR
  7. AVODART [Concomitant]
     Active Substance: DUTASTERIDE
  8. FINASTERIDE. [Concomitant]
     Active Substance: FINASTERIDE
  9. CIPROFLOXACIN. [Concomitant]
     Active Substance: CIPROFLOXACIN
  10. REGLAN [Concomitant]
     Active Substance: METOCLOPRAMIDE HYDROCHLORIDE
  11. CLONIDINE. [Concomitant]
     Active Substance: CLONIDINE
  12. ZEMPLAR [Concomitant]
     Active Substance: PARICALCITOL
  13. ZYVOX [Concomitant]
     Active Substance: LINEZOLID
     Dates: start: 20050914
  14. ZITHROMAX [Concomitant]
     Active Substance: AZITHROMYCIN DIHYDRATE
     Dates: start: 20050809
  15. NOVOLOG [Concomitant]
     Active Substance: INSULIN ASPART
  16. HYDRALAZINE [Concomitant]
     Active Substance: HYDRALAZINE HYDROCHLORIDE
  17. ENALAPRIL [Concomitant]
     Active Substance: ENALAPRIL
  18. ALTACE [Concomitant]
     Active Substance: RAMIPRIL
     Dates: start: 20040419
  19. LIPITOR [Concomitant]
     Active Substance: ATORVASTATIN CALCIUM
  20. FUROSEMIDE. [Concomitant]
     Active Substance: FUROSEMIDE
  21. GLYCOLAX [Concomitant]
     Active Substance: POLYETHYLENE GLYCOL 3350
     Dates: start: 20060228
  22. AZITHROMYCIN ANHYDROUS. [Concomitant]
     Active Substance: AZITHROMYCIN ANHYDROUS
  23. LOVENOX [Concomitant]
     Active Substance: ENOXAPARIN SODIUM
  24. NEXIUM [Suspect]
     Active Substance: ESOMEPRAZOLE MAGNESIUM
     Indication: GASTROOESOPHAGEAL REFLUX DISEASE
     Route: 048
     Dates: start: 20140303
  25. ZELNORM [Concomitant]
     Active Substance: TEGASEROD MALEATE
     Dates: start: 20051013
  26. TOBREX [Concomitant]
     Active Substance: TOBRAMYCIN
     Dates: start: 20050218
  27. TEQUIN [Concomitant]
     Active Substance: GATIFLOXACIN
     Dates: start: 20040419
  28. CLINDAMYCIN. [Concomitant]
     Active Substance: CLINDAMYCIN
     Dates: start: 20040319
  29. NIFEDIPINE. [Concomitant]
     Active Substance: NIFEDIPINE
  30. ENALAPRIL [Concomitant]
     Active Substance: ENALAPRIL
  31. MECLIZINE [Concomitant]
     Active Substance: MECLIZINE HYDROCHLORIDE

REACTIONS (7)
  - Renal injury [Unknown]
  - Acute kidney injury [Unknown]
  - Renal failure [Unknown]
  - Nephrogenic anaemia [Unknown]
  - Chronic kidney disease [Not Recovered/Not Resolved]
  - End stage renal disease [Unknown]
  - Hyperparathyroidism secondary [Unknown]

NARRATIVE: CASE EVENT DATE: 20090119
